FAERS Safety Report 5285582-2 (Version None)
Quarter: 2007Q1

REPORT INFORMATION
  Report Type: 
  Country: None (occurrence: None)
  Receive Date: 20061229
  Receipt Date: 20060927
  Transmission Date: 20070707
  Serious: Yes (Other)
  Sender: FDA-Public Use
  Company Number: 2006UW18806

PATIENT
  Age: 75 Year
  Sex: Female
  Weight: 65.77 kg

DRUGS (4)
  1. CRESTOR [Suspect]
     Indication: HYPERCHOLESTEROLAEMIA
     Dosage: 20 MG PO
     Route: 048
     Dates: start: 20060801
  2. LUENTIA [Suspect]
     Indication: MACULAR DEGENERATION
     Dates: start: 20060901
  3. AVASTIN [Concomitant]
  4. M.V.I. [Concomitant]

REACTIONS (3)
  - DRUG INTERACTION [None]
  - LOW DENSITY LIPOPROTEIN INCREASED [None]
  - MACULAR DEGENERATION [None]
